FAERS Safety Report 15396589 (Version 1)
Quarter: 2018Q3

REPORT INFORMATION
  Report Type: Other
  Country: US (occurrence: US)
  Receive Date: 20180918
  Receipt Date: 20180918
  Transmission Date: 20181010
  Serious: No
  Sender: FDA-Public Use
  Company Number: US-LEADIANT BIOSCIENCES INC-2018STPI000251

PATIENT
  Age: 32 Year
  Sex: Male

DRUGS (1)
  1. MATULANE [Suspect]
     Active Substance: PROCARBAZINE HYDROCHLORIDE
     Indication: ASTROCYTOMA
     Dosage: 100 MG, ON DAYS 8 TO 21 OF CYCLE
     Dates: start: 20171206

REACTIONS (2)
  - Hyperaesthesia [Unknown]
  - Constipation [Unknown]

NARRATIVE: CASE EVENT DATE: 201804
